FAERS Safety Report 24428465 (Version 1)
Quarter: 2024Q4

REPORT INFORMATION
  Report Type: Spontaneous
  Country: US (occurrence: US)
  Receive Date: 20241011
  Receipt Date: 20241011
  Transmission Date: 20250115
  Serious: No
  Sender: PFIZER
  Company Number: US-PFIZER INC-PV202400034893

PATIENT
  Age: 64 Year
  Sex: Female

DRUGS (21)
  1. XELJANZ XR [Interacting]
     Active Substance: TOFACITINIB CITRATE
     Dosage: UNK
  2. PRIMIDONE [Interacting]
     Active Substance: PRIMIDONE
     Dosage: UNK
  3. PROAIR HFA [Concomitant]
     Active Substance: ALBUTEROL SULFATE
     Dosage: UNK
  4. BUPROPION [Concomitant]
     Active Substance: BUPROPION
     Dosage: UNK (ER)
  5. TOPIRAMATE [Concomitant]
     Active Substance: TOPIRAMATE
     Dosage: UNK
  6. ESTRADIOL [Concomitant]
     Active Substance: ESTRADIOL
     Dosage: UNK
  7. DICLOFENAC [Concomitant]
     Active Substance: DICLOFENAC
     Dosage: UNK
  8. LOSARTAN POTASSIUM [Concomitant]
     Active Substance: LOSARTAN POTASSIUM
     Dosage: UNK
  9. METHOTREXATE [Concomitant]
     Active Substance: METHOTREXATE
     Dosage: UNK
  10. SUPREP BOWEL PREP [Concomitant]
     Active Substance: MAGNESIUM SULFATE\POTASSIUM SULFATE\SODIUM SULFATE
     Dosage: UNK
  11. PANTOPRAZOLE [Concomitant]
     Active Substance: PANTOPRAZOLE
     Dosage: UNK
  12. METOPROLOL [Concomitant]
     Active Substance: METOPROLOL
     Dosage: UNK
  13. OZEMPIC [Concomitant]
     Active Substance: SEMAGLUTIDE
     Dosage: UNK
  14. GABAPENTIN [Concomitant]
     Active Substance: GABAPENTIN
     Dosage: UNK
  15. TIZANIDINE [Concomitant]
     Active Substance: TIZANIDINE
     Dosage: UNK
  16. HYDROCORTISONE [Concomitant]
     Active Substance: HYDROCORTISONE
     Dosage: UNK
  17. POTASSIUM CHLORIDE [Concomitant]
     Active Substance: POTASSIUM CHLORIDE
     Dosage: UNK
  18. HYDROCHLOROTHIAZIDE [Concomitant]
     Active Substance: HYDROCHLOROTHIAZIDE
     Dosage: UNK
  19. VITAMIN B12 [Concomitant]
     Active Substance: CYANOCOBALAMIN
     Dosage: UNK
  20. MAGNESIUM [Concomitant]
     Active Substance: MAGNESIUM
     Dosage: UNK
  21. DULOXETINE [Concomitant]
     Active Substance: DULOXETINE
     Dosage: UNK

REACTIONS (2)
  - Labelled drug-drug interaction medication error [Unknown]
  - Liver disorder [Unknown]
